FAERS Safety Report 4864138-7 (Version None)
Quarter: 2005Q4

REPORT INFORMATION
  Report Type: 
  Country: None (occurrence: None)
  Receive Date: 20051222
  Receipt Date: 20051215
  Transmission Date: 20060501
  Serious: Yes (Hospitalization)
  Sender: FDA-Public Use
  Company Number: GB-GLAXOSMITHKLINE-B0403969A

PATIENT
  Age: 20 Year
  Sex: Female

DRUGS (1)
  1. ZYBAN [Suspect]
     Indication: SMOKING CESSATION THERAPY
     Dosage: 150MG VARIABLE DOSE
     Route: 048
     Dates: start: 20050706, end: 20051125

REACTIONS (2)
  - EYE IRRITATION [None]
  - EYE PRURITUS [None]
